FAERS Safety Report 5276682-1 (Version None)
Quarter: 2007Q1

REPORT INFORMATION
  Report Type: 
  Country: None (occurrence: None)
  Receive Date: 20070327
  Receipt Date: 20070314
  Transmission Date: 20070707
  Serious: Yes (Hospitalization)
  Sender: FDA-Public Use
  Company Number: PHBS2007JP04741

PATIENT
  Age: 30 Year
  Sex: Male

DRUGS (3)
  1. TEGRETOL [Suspect]
     Indication: EPILEPSY
     Dosage: 800 MG/DAY
     Route: 048
     Dates: start: 19930101
  2. PHENOBARBITAL TAB [Concomitant]
     Indication: EPILEPSY
     Dosage: 120 MG/DAY
     Route: 048
  3. ZONISAMIDE [Concomitant]
     Dosage: 400 MG/DAY
     Route: 048

REACTIONS (10)
  - BLOOD ALKALINE PHOSPHATASE INCREASED [None]
  - BONE DENSITY DECREASED [None]
  - C-REACTIVE PROTEIN INCREASED [None]
  - DEEP VEIN THROMBOSIS [None]
  - DIABETES MELLITUS INSULIN-DEPENDENT [None]
  - FRACTURE [None]
  - HYPERPARATHYROIDISM [None]
  - OSTEOMALACIA [None]
  - PANCREATITIS CHRONIC [None]
  - VITAMIN D ABNORMAL [None]
